FAERS Safety Report 9148449 (Version 1)
Quarter: 2013Q1

REPORT INFORMATION
  Report Type: Spontaneous
  Country: US (occurrence: None)
  Receive Date: 20130219
  Receipt Date: 20130219
  Transmission Date: 20140127
  Serious: Yes (Death, Hospitalization)
  Sender: FDA-Public Use
  Company Number: B0867425A

PATIENT
  Age: 78 Year
  Sex: Female

DRUGS (11)
  1. SUMATRIPTAN SUCCINATE [Suspect]
     Indication: MIGRAINE
     Route: 048
  2. CYCLOSPORIN [Suspect]
  3. PREDNISONE [Concomitant]
  4. DILTIAZEM HYDROCHLORIDE [Concomitant]
  5. ATENOLOL [Concomitant]
  6. ALLOPURINOL [Concomitant]
  7. METHIMAZOLE [Concomitant]
  8. RISEDRONIC ACID [Concomitant]
  9. TEMAZEPAM [Concomitant]
  10. ALPRAZOLAM [Concomitant]
  11. FRUSEMIDE [Concomitant]

REACTIONS (15)
  - Renal infarct [None]
  - Complications of transplanted kidney [None]
  - Polyuria [None]
  - Abdominal pain [None]
  - Blood urine absent [None]
  - Anuria [None]
  - Aspartate aminotransferase increased [None]
  - Alanine aminotransferase increased [None]
  - Blood lactate dehydrogenase increased [None]
  - Renal tubular necrosis [None]
  - Haemodialysis [None]
  - Nausea [None]
  - Hypertension [None]
  - Arteriosclerosis [None]
  - Protein urine present [None]
